FAERS Safety Report 10226966 (Version 1)
Quarter: 2014Q2

REPORT INFORMATION
  Report Type: Spontaneous
  Country: JP (occurrence: JP)
  Receive Date: 20140610
  Receipt Date: 20140610
  Transmission Date: 20141212
  Serious: Yes (Hospitalization)
  Sender: FDA-Public Use
  Company Number: JP-ROCHE-1410735

PATIENT
  Age: 65 Year
  Sex: Female
  Weight: 47 kg

DRUGS (6)
  1. PEGASYS [Suspect]
     Indication: CHRONIC HEPATITIS C
     Dosage: LAST DOSE PRIOR TO SERIOUS ADVERSE EVENTS: 01/MAY/2014
     Route: 058
     Dates: start: 20140501
  2. COPEGUS [Suspect]
     Indication: CHRONIC HEPATITIS C
     Dosage: LAST DOSE PRIOR TO SERIOUS ADVERSE EVENT: 06/MAY/2014
     Route: 048
     Dates: start: 20140501
  3. ETIZOLAM [Suspect]
     Indication: INSOMNIA
     Dosage: LASDT DOSE PRIOR TO SERIOUS ADVERSE EVENT: 06/MAY/2014
     Route: 048
     Dates: start: 20140505
  4. MYSLEE [Suspect]
     Indication: INSOMNIA
     Route: 048
  5. SOVRIAD [Concomitant]
     Indication: CHRONIC HEPATITIS C
     Route: 048
     Dates: start: 20140501, end: 20140506
  6. CEPHADOL [Concomitant]
     Indication: DIZZINESS
     Route: 048
     Dates: start: 20140501, end: 20140519

REACTIONS (4)
  - Traumatic intracranial haemorrhage [Recovering/Resolving]
  - Brain contusion [Recovering/Resolving]
  - Dizziness [Unknown]
  - Fall [Unknown]
